FAERS Safety Report 7256282-4 (Version None)
Quarter: 2011Q1

REPORT INFORMATION
  Report Type: 
  Country: None (occurrence: None)
  Receive Date: 20110129
  Receipt Date: 20100714
  Transmission Date: 20110831
  Serious: Yes (Other)
  Sender: FDA-Public Use
  Company Number: US-ABBOTT-10P-163-0649001-00

PATIENT
  Sex: Male
  Weight: 122.58 kg

DRUGS (2)
  1. HUMIRA [Suspect]
     Indication: PSORIATIC ARTHROPATHY
     Dates: start: 20100512, end: 20100524
  2. HUMIRA [Suspect]
     Indication: PSORIASIS
     Dates: start: 20091201, end: 20100501

REACTIONS (2)
  - DRUG DOSE OMISSION [None]
  - STAPHYLOCOCCAL INFECTION [None]
